FAERS Safety Report 6716850-2 (Version None)
Quarter: 2010Q2

REPORT INFORMATION
  Report Type: 
  Country: None (occurrence: None)
  Receive Date: 20100510
  Receipt Date: 20100430
  Transmission Date: 20101027
  Serious: Yes (Death, Hospitalization)
  Sender: FDA-Public Use
  Company Number: IN-ELI_LILLY_AND_COMPANY-IN201004005060

PATIENT
  Sex: Male
  Weight: 64 kg

DRUGS (14)
  1. PEMETREXED [Suspect]
     Indication: NON-SMALL CELL LUNG CANCER
     Dosage: 500 MG/M2, DAY 1 EVERY 21 DAYS
     Route: 042
     Dates: start: 20100308
  2. CISPLATIN [Suspect]
     Indication: NON-SMALL CELL LUNG CANCER
     Dosage: 75 MG/M2, DAY 1 EVERY 21 DAYS
     Route: 042
     Dates: start: 20100308
  3. TELMISARTAN [Concomitant]
     Indication: HYPERTENSION
     Dosage: UNK, UNKNOWN
     Route: 065
     Dates: start: 20020101
  4. TELMISARTAN [Concomitant]
     Dosage: 40 MG, DAILY (1/D)
     Route: 048
     Dates: start: 20100420, end: 20100430
  5. ETAPHYLLINE [Concomitant]
     Indication: DYSPNOEA
     Dosage: 100 MG, 3/D
     Route: 065
     Dates: start: 20100302, end: 20100430
  6. THEOPHYLLINE [Concomitant]
     Indication: DYSPNOEA
     Dosage: 100 MG, 3/D
     Route: 065
     Dates: start: 20100302, end: 20100430
  7. CODEINE SULFATE [Concomitant]
     Indication: COUGH
     Dosage: 5 ML, 3/D
     Route: 065
     Dates: start: 20100326, end: 20100430
  8. SODIUM PICOSULFATE [Concomitant]
     Indication: CONSTIPATION
     Dosage: 10 MG, WEEKLY (1/W)
     Route: 065
     Dates: start: 20080101, end: 20100430
  9. CETRIZIN [Concomitant]
     Indication: HYPERSENSITIVITY
     Dosage: 10 MG, 2/D
     Route: 065
     Dates: start: 20100416, end: 20100430
  10. PHENYLPROPANOLAMINE [Concomitant]
     Indication: HYPERSENSITIVITY
     Dosage: 10 MG, 2/D
     Route: 065
     Dates: start: 20100416, end: 20100430
  11. RABEPRAZOLE SODIUM [Concomitant]
     Indication: DIABETES MELLITUS
     Dosage: UNK, DAILY (1/D)
     Route: 065
     Dates: start: 20100306, end: 20100430
  12. FOLIC ACID [Concomitant]
     Indication: PROPHYLAXIS
     Dosage: UNK, DAILY (1/D)
     Route: 065
     Dates: start: 20100302, end: 20100430
  13. VITAMIN B-12 [Concomitant]
     Indication: PROPHYLAXIS
     Dosage: UNK, UNKNOWN
     Route: 065
     Dates: start: 20100302, end: 20100430
  14. DEXAMETHASONE [Concomitant]
     Indication: PROPHYLAXIS
     Dosage: 4 MG, 2/D
     Route: 065
     Dates: start: 20100307, end: 20100430

REACTIONS (11)
  - ALTERED STATE OF CONSCIOUSNESS [None]
  - ASTHENIA [None]
  - CARDIO-RESPIRATORY ARREST [None]
  - DYSPNOEA [None]
  - FATIGUE [None]
  - INAPPROPRIATE ANTIDIURETIC HORMONE SECRETION [None]
  - OEDEMA PERIPHERAL [None]
  - ORAL CANDIDIASIS [None]
  - PSEUDOMONAS TEST POSITIVE [None]
  - STOMATITIS [None]
  - URINARY INCONTINENCE [None]
